FAERS Safety Report 19874345 (Version 1)
Quarter: 2021Q3

REPORT INFORMATION
  Report Type: Spontaneous
  Country: US (occurrence: US)
  Receive Date: 20210922
  Receipt Date: 20210922
  Transmission Date: 20211014
  Serious: No
  Sender: FDA-Public Use
  Company Number: US-SA-2021SA305703

PATIENT
  Sex: Male

DRUGS (7)
  1. CETIRIZINE HYDROCHLORIDE. [Suspect]
     Active Substance: CETIRIZINE HYDROCHLORIDE
     Dosage: UNK
     Route: 065
  2. FLUTICASONE. [Suspect]
     Active Substance: FLUTICASONE
     Dosage: UNK
     Route: 065
  3. RHINOCORT ALLERGY [Concomitant]
     Active Substance: BUDESONIDE
     Dosage: SPRAY/PUMP
  4. TRIAMCINOLONE ACETONIDE. [Concomitant]
     Active Substance: TRIAMCINOLONE ACETONIDE
  5. BUDESONIDE. [Concomitant]
     Active Substance: BUDESONIDE
  6. OLOPATADINE HCL [Concomitant]
     Active Substance: OLOPATADINE HYDROCHLORIDE
  7. DUPIXENT [Suspect]
     Active Substance: DUPILUMAB
     Indication: DERMATITIS ATOPIC
     Dosage: 300 MG, QOW
     Route: 058
     Dates: start: 2016

REACTIONS (7)
  - Nasal dryness [Unknown]
  - Eyelid skin dryness [Unknown]
  - Ocular hyperaemia [Unknown]
  - Sleep deficit [Unknown]
  - Somnolence [Unknown]
  - Dry eye [Unknown]
  - Fatigue [Unknown]
